FAERS Safety Report 15926182 (Version 1)
Quarter: 2019Q1

REPORT INFORMATION
  Report Type: Report from Study
  Country: None (occurrence: LB)
  Receive Date: 20190206
  Receipt Date: 20190206
  Transmission Date: 20190417
  Serious: Yes (Hospitalization, Disabling)
  Sender: FDA-Public Use
  Company Number: LB-ABBVIE-19K-093-2649750-00

PATIENT
  Age: 60 Year
  Sex: Female
  Weight: 110 kg

DRUGS (5)
  1. FOLIC ACID. [Concomitant]
     Active Substance: FOLIC ACID
     Indication: PRODUCT USED FOR UNKNOWN INDICATION
  2. GLUCOPHAGE [Concomitant]
     Active Substance: METFORMIN HYDROCHLORIDE
     Indication: PRODUCT USED FOR UNKNOWN INDICATION
  3. EBETREXAT [Concomitant]
     Active Substance: METHOTREXATE SODIUM
     Indication: PRODUCT USED FOR UNKNOWN INDICATION
  4. AMLOR [Concomitant]
     Active Substance: AMLODIPINE BESYLATE
     Indication: PRODUCT USED FOR UNKNOWN INDICATION
  5. HUMIRA [Suspect]
     Active Substance: ADALIMUMAB
     Indication: PSORIATIC ARTHROPATHY
     Route: 058
     Dates: start: 20170805

REACTIONS (10)
  - Cardiac disorder [Recovered/Resolved]
  - Lung infection [Not Recovered/Not Resolved]
  - Appendicitis [Recovered/Resolved]
  - Dyspnoea [Not Recovered/Not Resolved]
  - Hypertension [Recovered/Resolved]
  - Influenza [Not Recovered/Not Resolved]
  - Gait inability [Recovering/Resolving]
  - Abdominal pain [Recovered/Resolved]
  - Insomnia [Recovering/Resolving]
  - Oedema peripheral [Recovering/Resolving]

NARRATIVE: CASE EVENT DATE: 201812
